FAERS Safety Report 4989470-8 (Version None)
Quarter: 2006Q2

REPORT INFORMATION
  Report Type: 
  Country: None (occurrence: None)
  Receive Date: 20060426
  Receipt Date: 20060419
  Transmission Date: 20061013
  Serious: Yes (Hospitalization, Other)
  Sender: FDA-Public Use
  Company Number: USA-2005-0020849

PATIENT
  Age: 63 Year
  Sex: Male

DRUGS (23)
  1. OXYCONTIN [Suspect]
     Indication: PAIN
     Dosage: SEE IMAGE
  2. DEPO-TESTOSTERONE [Concomitant]
  3. SINGULAIR [Concomitant]
  4. ALBUTEROL [Concomitant]
  5. ZOLOFT [Concomitant]
  6. CIALIS [Concomitant]
  7. LEVOTHYROXINE SODIUM [Concomitant]
  8. NEXIUM [Concomitant]
  9. LORAZEPAM [Concomitant]
  10. FUROSEMIDE [Concomitant]
  11. THEOPHYLLINE-SR [Concomitant]
  12. POTASSIUM (POTASSIUM) [Concomitant]
  13. ZAROXOLYN [Concomitant]
  14. FENTANYL [Concomitant]
  15. OXYGEN (OXYGEN) [Concomitant]
  16. ATROVENT [Concomitant]
  17. VICODIN [Concomitant]
  18. VIOXX [Concomitant]
  19. ADVAIR DISKUS (FLUTICASONE PROPIONATE) [Concomitant]
  20. ASPIRIN [Concomitant]
  21. LIDODERM [Concomitant]
  22. TRILAFON [Concomitant]
  23. SPIRONOLACTONE [Concomitant]

REACTIONS (37)
  - ANXIETY [None]
  - ARTERIOSCLEROSIS CORONARY ARTERY [None]
  - ARTHRALGIA [None]
  - ASTHMA [None]
  - BACK PAIN [None]
  - BLOOD CREATININE INCREASED [None]
  - CHRONIC OBSTRUCTIVE PULMONARY DISEASE [None]
  - COLONIC POLYP [None]
  - CONDITION AGGRAVATED [None]
  - CONSTIPATION [None]
  - DELUSIONAL DISORDER, UNSPECIFIED TYPE [None]
  - DEPRESSION [None]
  - DRUG DEPENDENCE [None]
  - DRUG TOLERANCE [None]
  - DRUG WITHDRAWAL SYNDROME [None]
  - DYSPHAGIA [None]
  - DYSPNOEA [None]
  - DYSPNOEA EXERTIONAL [None]
  - FATIGUE [None]
  - GASTROINTESTINAL HAEMORRHAGE [None]
  - HOT FLUSH [None]
  - HYPOAESTHESIA [None]
  - HYPOGONADISM [None]
  - HYPOKALAEMIA [None]
  - MUSCLE SPASMS [None]
  - OBSESSIVE-COMPULSIVE DISORDER [None]
  - OEDEMA [None]
  - OSTEOARTHRITIS [None]
  - PAIN [None]
  - PARANOIA [None]
  - SPUTUM DISCOLOURED [None]
  - TENDERNESS [None]
  - TOOTH EXTRACTION [None]
  - TREMOR [None]
  - VITAMIN B12 DEFICIENCY [None]
  - WEIGHT DECREASED [None]
  - WHEEZING [None]
